FAERS Safety Report 21310507 (Version 2)
Quarter: 2022Q3

REPORT INFORMATION
  Report Type: Spontaneous
  Country: CN (occurrence: CN)
  Receive Date: 20220909
  Receipt Date: 20220916
  Transmission Date: 20221026
  Serious: Yes (Other)
  Sender: FDA-Public Use
  Company Number: CN-009507513-2209CHN001044

PATIENT
  Age: 78 Year
  Sex: Female

DRUGS (22)
  1. CASPOFUNGIN ACETATE [Suspect]
     Active Substance: CASPOFUNGIN ACETATE
     Indication: Pneumonia
     Dosage: 70 MILLIGRAM, ONCE, INITIAL DOSE
     Dates: start: 20090304, end: 20090304
  2. CASPOFUNGIN ACETATE [Suspect]
     Active Substance: CASPOFUNGIN ACETATE
     Dosage: 50 MILLIGRAM, QD
     Dates: start: 20090305, end: 20090310
  3. LINEZOLID [Suspect]
     Active Substance: LINEZOLID
     Indication: Pneumonia
     Dosage: 600 MILLIGRAM, Q12H
     Dates: start: 20090303, end: 20090310
  4. CILASTATIN SODIUM\IMIPENEM [Concomitant]
     Active Substance: CILASTATIN SODIUM\IMIPENEM
     Indication: Pneumonia
     Dosage: 0.5 GRAM, TID
  5. AMLODIPINE [Concomitant]
     Active Substance: AMLODIPINE BESYLATE
     Indication: Hypertension
     Dosage: UNK
     Route: 048
     Dates: start: 20090216, end: 20090309
  6. METFORMIN [Concomitant]
     Active Substance: METFORMIN HYDROCHLORIDE
     Indication: Type 2 diabetes mellitus
     Dosage: 0.5 GRAM, BID
     Route: 048
     Dates: start: 20090216, end: 20090305
  7. SPIRONOLACTONE [Concomitant]
     Active Substance: SPIRONOLACTONE
     Dosage: UNK
     Route: 048
     Dates: start: 20090216, end: 20090309
  8. FUROSEMIDE [Concomitant]
     Active Substance: FUROSEMIDE
     Dosage: UNK
     Route: 048
     Dates: start: 20090216, end: 20090309
  9. POTASSIUM CHLORIDE [Concomitant]
     Active Substance: POTASSIUM CHLORIDE
     Dosage: UNK
     Route: 048
     Dates: start: 20090216, end: 20090309
  10. AMBROXOL [Concomitant]
     Active Substance: AMBROXOL
     Dosage: UNK
     Route: 048
     Dates: start: 20090216, end: 20090309
  11. COMPOUND METHOXYPHENAMINE [Concomitant]
     Dosage: UNK
     Route: 048
     Dates: start: 20090216, end: 20090309
  12. INDOMETHACIN [Concomitant]
     Active Substance: INDOMETHACIN
     Dosage: FOR INTERMITTENT USE
     Dates: start: 20090216, end: 20090309
  13. AMINO ACIDS, SOURCE UNSPECIFIED [Concomitant]
     Active Substance: AMINO ACIDS, SOURCE UNSPECIFIED
     Dosage: UNK
     Route: 042
     Dates: start: 20090216, end: 20090305
  14. DYPHYLLINE [Concomitant]
     Active Substance: DYPHYLLINE
     Dosage: UNK
     Route: 042
     Dates: start: 20090216, end: 20090305
  15. TORSEMIDE [Concomitant]
     Active Substance: TORSEMIDE
     Dosage: UNK
     Route: 042
     Dates: start: 20090216, end: 20090305
  16. AMBROXOL [Concomitant]
     Active Substance: AMBROXOL
     Dosage: UNK
     Route: 042
     Dates: start: 20090216, end: 20090305
  17. OMEPRAZOLE [Concomitant]
     Active Substance: OMEPRAZOLE
     Dosage: UNK
     Route: 042
     Dates: start: 20090216, end: 20090305
  18. AZITHROMYCIN [Concomitant]
     Active Substance: AZITHROMYCIN
     Dosage: 0.5 GRAM
     Dates: start: 20090216
  19. VANCOMYCIN [Concomitant]
     Active Substance: VANCOMYCIN
     Dosage: 0.5 GRAM, BID
     Dates: start: 20090217, end: 20090302
  20. METHYLPREDNISOLONE [Concomitant]
     Active Substance: METHYLPREDNISOLONE
     Dosage: 40 - 80 MG, TID OR QID
     Dates: start: 20090302, end: 20090308
  21. FOSFOMYCIN [Concomitant]
     Active Substance: FOSFOMYCIN
     Dosage: 4 GRAM, BID
     Dates: start: 20090227, end: 20090303
  22. FLUCONAZOLE [Concomitant]
     Active Substance: FLUCONAZOLE
     Dosage: 0.2 GRAM, QD
     Dates: start: 20090224, end: 20090303

REACTIONS (2)
  - Drug-induced liver injury [Recovered/Resolved]
  - Therapeutic product effect incomplete [Unknown]

NARRATIVE: CASE EVENT DATE: 20090301
